FAERS Safety Report 9511859 (Version 1)
Quarter: 2013Q1

REPORT INFORMATION
  Report Type: Spontaneous
  Country: US (occurrence: None)
  Receive Date: 20130305
  Receipt Date: 20130305
  Transmission Date: 20140127
  Serious: Yes (Other)
  Sender: FDA-Public Use
  Company Number: 163-21880-12111888

PATIENT
  Age: 71 Year
  Sex: Male

DRUGS (5)
  1. REVLIMID [Suspect]
     Indication: BLADDER CANCER
     Dosage: 10 MG, 1 IN 1 D, PO
     Route: 048
     Dates: start: 20120805, end: 20121022
  2. LIPITOR [Suspect]
     Indication: BLOOD CHOLESTEROL INCREASED
     Dosage: 40 MG, 1 IN 1 D, PO
     Route: 048
     Dates: start: 1990, end: 02121022
  3. LEVOTHYROXINE (LEVOTHYROXINE) (UNKNOWN) [Concomitant]
  4. METOPROLOL (METPROLOL) (UNKNOWN) [Concomitant]
  5. ASPIRIN (ACETYLSALICYLIC (ACID) (UNKNOWN) [Concomitant]

REACTIONS (1)
  - Liver function test abnormal [None]
